FAERS Safety Report 7737737-2 (Version None)
Quarter: 2011Q3

REPORT INFORMATION
  Report Type: 
  Country: None (occurrence: None)
  Receive Date: 20110908
  Receipt Date: 20110905
  Transmission Date: 20111222
  Serious: Yes (Disabling)
  Sender: FDA-Public Use
  Company Number: DE-PFIZER INC-2011194752

PATIENT
  Age: 71 Year
  Sex: Male
  Weight: 76 kg

DRUGS (3)
  1. SUTENT [Suspect]
     Dosage: 50 MG, 4 WEEKS TREATMENT, 4 WEEKS PAUSE
     Route: 048
     Dates: start: 20101001, end: 20110301
  2. SUTENT [Suspect]
     Dosage: 50 MG, 4 WEEKS TREATMENT, 3 WEEKS PAUSE
     Route: 048
     Dates: start: 20091001, end: 20101001
  3. SUTENT [Suspect]
     Indication: METASTATIC RENAL CELL CARCINOMA
     Dosage: 50 MG, 4 WEEKS TREATMENT, 2 WEEKS PAUSE
     Route: 048
     Dates: start: 20080101, end: 20091001

REACTIONS (1)
  - PERIPHERAL MOTOR NEUROPATHY [None]
